FAERS Safety Report 6959400-8 (Version None)
Quarter: 2010Q3

REPORT INFORMATION
  Report Type: 
  Country: None (occurrence: None)
  Receive Date: 20100831
  Receipt Date: 20100831
  Transmission Date: 20110219
  Serious: No
  Sender: FDA-Public Use
  Company Number: None

PATIENT
  Sex: Female

DRUGS (3)
  1. ENOXAPARIN SODIUM [Suspect]
     Indication: ABORTION SPONTANEOUS
     Dosage: 40 MG DAILY SQ
     Route: 058
     Dates: start: 20100817, end: 20100827
  2. ENOXAPARIN SODIUM [Suspect]
     Indication: CARDIOLIPIN ANTIBODY
     Dosage: 40 MG DAILY SQ
     Route: 058
     Dates: start: 20100817, end: 20100827
  3. ENOXAPARIN SODIUM [Suspect]
     Indication: CROSSMATCH
     Dosage: 40 MG DAILY SQ
     Route: 058
     Dates: start: 20100817, end: 20100827

REACTIONS (2)
  - INJECTION SITE HAEMATOMA [None]
  - PRODUCT SUBSTITUTION ISSUE [None]
